FAERS Safety Report 11315489 (Version 7)
Quarter: 2015Q4

REPORT INFORMATION
  Report Type: Report from Study
  Country: IT (occurrence: IT)
  Receive Date: 20150728
  Receipt Date: 20151224
  Transmission Date: 20160304
  Serious: Yes (Death, Hospitalization, Disabling)
  Sender: FDA-Public Use
  Company Number: IT-ROCHE-1610070

PATIENT
  Age: 78 Year
  Sex: Female
  Weight: 66 kg

DRUGS (65)
  1. BENDAMUSTINE [Suspect]
     Active Substance: BENDAMUSTINE
     Indication: CHRONIC LYMPHOCYTIC LEUKAEMIA
     Route: 042
     Dates: start: 20130103, end: 20130523
  2. TRIMETON (ITALY) [Concomitant]
     Route: 042
     Dates: start: 20140404, end: 20140404
  3. TRIMETON (ITALY) [Concomitant]
     Route: 042
     Dates: start: 20140528, end: 20140528
  4. COMBISARTAN [Concomitant]
     Active Substance: HYDROCHLOROTHIAZIDE\LOSARTAN POTASSIUM
     Route: 048
     Dates: start: 2005
  5. PARACETAMOL [Concomitant]
     Active Substance: ACETAMINOPHEN
     Route: 048
     Dates: start: 20140327, end: 20140327
  6. URBASON [Concomitant]
     Active Substance: METHYLPREDNISOLONE
     Route: 042
     Dates: start: 20140411, end: 20140411
  7. URBASON [Concomitant]
     Active Substance: METHYLPREDNISOLONE
     Route: 042
     Dates: start: 20140723, end: 20140723
  8. ZELITREX [Concomitant]
     Active Substance: VALACYCLOVIR HYDROCHLORIDE
     Route: 048
     Dates: start: 20140329
  9. MYELOSTIM [Concomitant]
     Dosage: ONCE A DAY
     Route: 042
     Dates: start: 20140330, end: 20140401
  10. MYELOSTIM [Concomitant]
     Dosage: EVERY OTHER DAYS
     Route: 042
     Dates: start: 20140614, end: 20140616
  11. OBINUTUZUMAB [Suspect]
     Active Substance: OBINUTUZUMAB
     Indication: CHRONIC LYMPHOCYTIC LEUKAEMIA
     Dosage: DISCONTINUED ON 01/AUG/2014
     Route: 042
     Dates: start: 20140327, end: 20140327
  12. TRIMETON (ITALY) [Concomitant]
     Route: 042
     Dates: start: 20140327, end: 20140327
  13. LOSEC [Concomitant]
     Active Substance: OMEPRAZOLE
     Route: 048
     Dates: start: 2008
  14. URBASON [Concomitant]
     Active Substance: METHYLPREDNISOLONE
     Route: 042
     Dates: start: 20140327, end: 20140327
  15. KYTRIL [Concomitant]
     Active Substance: GRANISETRON HYDROCHLORIDE
     Route: 042
     Dates: start: 20140327, end: 20140327
  16. MYELOSTIM [Concomitant]
     Dosage: EVERY OTHER DAYS
     Route: 042
     Dates: start: 20140423, end: 20140427
  17. OBINUTUZUMAB [Suspect]
     Active Substance: OBINUTUZUMAB
     Route: 042
     Dates: start: 20140404, end: 20140404
  18. OBINUTUZUMAB [Suspect]
     Active Substance: OBINUTUZUMAB
     Route: 042
     Dates: start: 20140723, end: 20140723
  19. TRIMETON (ITALY) [Concomitant]
     Route: 042
     Dates: start: 20140411, end: 20140411
  20. PARACETAMOL [Concomitant]
     Active Substance: ACETAMINOPHEN
     Route: 048
     Dates: start: 20140526, end: 20140526
  21. PARACETAMOL [Concomitant]
     Active Substance: ACETAMINOPHEN
     Route: 048
     Dates: start: 20140723, end: 20140723
  22. URBASON [Concomitant]
     Active Substance: METHYLPREDNISOLONE
     Route: 042
     Dates: start: 20140625, end: 20140625
  23. BACTRIM [Concomitant]
     Active Substance: SULFAMETHOXAZOLE\TRIMETHOPRIM
     Route: 048
     Dates: start: 20140331
  24. ZANTAC [Concomitant]
     Active Substance: RANITIDINE HYDROCHLORIDE
     Route: 042
     Dates: start: 20140625, end: 20140625
  25. MYELOSTIM [Concomitant]
     Route: 065
     Dates: start: 20140614, end: 20140614
  26. OBINUTUZUMAB [Suspect]
     Active Substance: OBINUTUZUMAB
     Route: 042
     Dates: start: 20140528, end: 20140528
  27. NOX-A12 [Suspect]
     Active Substance: OLAPTESED PEGOL
     Indication: CHRONIC LYMPHOCYTIC LEUKAEMIA
     Route: 042
     Dates: start: 20130103, end: 20130521
  28. CHLORPHENAMINE MALEATE [Concomitant]
     Active Substance: CHLORPHENIRAMINE MALEATE
  29. PARACETAMOL [Concomitant]
     Active Substance: ACETAMINOPHEN
     Route: 048
     Dates: start: 20140411, end: 20140411
  30. PARACETAMOL [Concomitant]
     Active Substance: ACETAMINOPHEN
     Route: 048
     Dates: start: 20140430, end: 20140430
  31. ZANTAC [Concomitant]
     Active Substance: RANITIDINE HYDROCHLORIDE
     Route: 042
     Dates: start: 20140411, end: 20140411
  32. ZANTAC [Concomitant]
     Active Substance: RANITIDINE HYDROCHLORIDE
     Route: 042
     Dates: start: 20140430, end: 20140430
  33. ZANTAC [Concomitant]
     Active Substance: RANITIDINE HYDROCHLORIDE
     Route: 042
     Dates: start: 20140723, end: 20140723
  34. RITUXIMAB [Suspect]
     Active Substance: RITUXIMAB
     Indication: CHRONIC LYMPHOCYTIC LEUKAEMIA
     Dosage: 1 X 500 MG 50 ML VIAL?FREQUENCY, DATES AND DOSES AS PER GQ: C1 AT 375MG/KG, C2-6 AT 500MG/KG. 6 CYCL
     Route: 042
     Dates: start: 20130104, end: 20130523
  35. TRIMETON (ITALY) [Concomitant]
     Route: 042
     Dates: start: 20140328, end: 20140328
  36. TRIMETON (ITALY) [Concomitant]
     Route: 042
     Dates: start: 20140723, end: 20140723
  37. SULFAMETHOXAZOLE [Concomitant]
     Active Substance: SULFAMETHOXAZOLE
  38. ITRACONAZOLE. [Concomitant]
     Active Substance: ITRACONAZOLE
     Route: 048
     Dates: start: 20140329, end: 20140403
  39. VALACYCLOVIR [Concomitant]
     Active Substance: VALACYCLOVIR HYDROCHLORIDE
  40. URBASON [Concomitant]
     Active Substance: METHYLPREDNISOLONE
     Route: 042
     Dates: start: 20140327, end: 20140327
  41. URBASON [Concomitant]
     Active Substance: METHYLPREDNISOLONE
     Route: 042
     Dates: start: 20140528, end: 20140528
  42. ZANTAC [Concomitant]
     Active Substance: RANITIDINE HYDROCHLORIDE
     Indication: PROPHYLAXIS
     Route: 042
     Dates: start: 20140327, end: 20140328
  43. OBINUTUZUMAB [Suspect]
     Active Substance: OBINUTUZUMAB
     Route: 042
     Dates: start: 20140411, end: 20140411
  44. OBINUTUZUMAB [Suspect]
     Active Substance: OBINUTUZUMAB
     Route: 042
     Dates: start: 20140430, end: 20140430
  45. OBINUTUZUMAB [Suspect]
     Active Substance: OBINUTUZUMAB
     Route: 042
     Dates: start: 20140625, end: 20140625
  46. TRIMETON (ITALY) [Concomitant]
     Route: 042
     Dates: start: 20140430, end: 20140430
  47. PLENDIL [Concomitant]
     Active Substance: FELODIPINE
     Route: 048
     Dates: start: 2005
  48. ZANTAC [Concomitant]
     Active Substance: RANITIDINE HYDROCHLORIDE
     Route: 042
     Dates: start: 20140404, end: 20140404
  49. ZANTAC [Concomitant]
     Active Substance: RANITIDINE HYDROCHLORIDE
     Route: 065
     Dates: start: 20140528, end: 20140528
  50. MYELOSTIM [Concomitant]
     Route: 065
     Dates: start: 20140616, end: 20140616
  51. MYELOSTIM [Concomitant]
     Dosage: EVERY OTHER DAYS
     Route: 042
     Dates: start: 20140514, end: 20140518
  52. OBINUTUZUMAB [Suspect]
     Active Substance: OBINUTUZUMAB
     Route: 042
     Dates: start: 20140328, end: 20140328
  53. ALLOPURINOL. [Concomitant]
     Active Substance: ALLOPURINOL
     Route: 048
  54. URBASON [Concomitant]
     Active Substance: METHYLPREDNISOLONE
     Route: 042
     Dates: start: 20140404, end: 20140404
  55. URBASON [Concomitant]
     Active Substance: METHYLPREDNISOLONE
     Route: 042
     Dates: start: 20140328, end: 20140328
  56. MYELOSTIM [Concomitant]
     Dosage: SINGLE DOSE
     Route: 042
     Dates: start: 20140406, end: 20140407
  57. MYELOSTIM [Concomitant]
     Dosage: EVERY OTHER DAYS
     Route: 042
     Dates: start: 20140707, end: 20140707
  58. TRIMETHOPRIM. [Concomitant]
     Active Substance: TRIMETHOPRIM
  59. LEVOFLOXACIN. [Concomitant]
     Active Substance: LEVOFLOXACIN
     Route: 048
     Dates: start: 20140329, end: 20140403
  60. PARACETAMOL [Concomitant]
     Active Substance: ACETAMINOPHEN
     Route: 042
     Dates: start: 20140404, end: 20140404
  61. PARACETAMOL [Concomitant]
     Active Substance: ACETAMINOPHEN
     Route: 048
     Dates: start: 20140328, end: 20140328
  62. PARACETAMOL [Concomitant]
     Active Substance: ACETAMINOPHEN
     Route: 048
     Dates: start: 20140625, end: 20140625
  63. RANITIDINE [Concomitant]
     Active Substance: RANITIDINE\RANITIDINE HYDROCHLORIDE
  64. URBASON [Concomitant]
     Active Substance: METHYLPREDNISOLONE
     Route: 042
     Dates: start: 20140430, end: 20140430
  65. MYELOSTIM [Concomitant]
     Dosage: EVERY OTHER DAYS
     Route: 042
     Dates: start: 20140710, end: 20140710

REACTIONS (1)
  - Progressive multifocal leukoencephalopathy [Fatal]

NARRATIVE: CASE EVENT DATE: 20140603
